FAERS Safety Report 12996909 (Version 1)
Quarter: 2016Q4

REPORT INFORMATION
  Report Type: Spontaneous
  Country: CZ (occurrence: CZ)
  Receive Date: 20161205
  Receipt Date: 20161205
  Transmission Date: 20170207
  Serious: Yes (Other)
  Sender: FDA-Public Use
  Company Number: PHHY2016CZ162200

PATIENT
  Age: 71 Year
  Sex: Male

DRUGS (3)
  1. NEOMYCIN [Suspect]
     Active Substance: NEOMYCIN
     Indication: RETROPERITONEAL CANCER
     Dosage: UNK
     Route: 065
     Dates: start: 1992
  2. VINBLASTIN [Suspect]
     Active Substance: VINBLASTINE
     Indication: RETROPERITONEAL CANCER
     Route: 065
  3. DOXYCYCLINE. [Suspect]
     Active Substance: DOXYCYCLINE
     Indication: RETROPERITONEAL CANCER
     Dosage: UNK
     Route: 065
     Dates: start: 1992

REACTIONS (1)
  - Renal cancer [Unknown]
